FAERS Safety Report 8336094-0 (Version None)
Quarter: 2012Q1

REPORT INFORMATION
  Report Type: 
  Country: None (occurrence: None)
  Receive Date: 20120329
  Receipt Date: 20081218
  Transmission Date: 20120608
  Serious: Yes (Other)
  Sender: FDA-Public Use
  Company Number: PHEH2008US11293

PATIENT
  Sex: Male

DRUGS (1)
  1. EXELON [Suspect]
     Dosage: 4.6MG, TRANSDERMAL
     Route: 062
     Dates: start: 20081204

REACTIONS (1)
  - CONFUSIONAL STATE [None]
